FAERS Safety Report 6599751-2 (Version None)
Quarter: 2010Q1

REPORT INFORMATION
  Report Type: 
  Country: None (occurrence: None)
  Receive Date: 20100224
  Receipt Date: 20100212
  Transmission Date: 20100710
  Serious: Yes (Other)
  Sender: FDA-Public Use
  Company Number: PHHY2010ZA08487

PATIENT
  Sex: Male

DRUGS (1)
  1. TAREG [Suspect]
     Indication: HYPERTENSION
     Dosage: 80 MG

REACTIONS (3)
  - ANGINA PECTORIS [None]
  - BLOOD PRESSURE INADEQUATELY CONTROLLED [None]
  - HYPERTENSION [None]
